FAERS Safety Report 8352313-9 (Version None)
Quarter: 2012Q2

REPORT INFORMATION
  Report Type: 
  Country: None (occurrence: None)
  Receive Date: 20120511
  Receipt Date: 20120507
  Transmission Date: 20120825
  Serious: Yes (Hospitalization, Other)
  Sender: FDA-Public Use
  Company Number: US-ASTRAZENECA-2011SE32265

PATIENT
  Age: 62 Year
  Sex: Female

DRUGS (34)
  1. BENICAR HCT [Concomitant]
     Indication: HYPERTENSION
  2. PREVENTATIVE MAZALT [Concomitant]
     Indication: MIGRAINE
  3. LEVOTHYROXINE SODIUM [Concomitant]
     Indication: HYPOTHYROIDISM
  4. MAXALT [Concomitant]
     Dosage: 10 MG PRN
     Dates: start: 20060127
  5. FIORINAL [Concomitant]
     Indication: HEADACHE
     Dates: start: 20050101
  6. BENTYL [Concomitant]
     Dosage: 20 MG PRN
     Dates: start: 20060127
  7. ACTONEL [Concomitant]
     Dates: start: 20050101
  8. ACTONEL [Concomitant]
     Dosage: 35 MG WEEKLY
     Dates: start: 20060127
  9. BENICAR HCT [Concomitant]
     Dosage: 20/12.5 QD
     Dates: start: 20060127
  10. ENABLEX [Concomitant]
     Indication: URINARY INCONTINENCE
  11. ALLEGRA-D 12 HOUR [Concomitant]
     Indication: RHINITIS ALLERGIC
     Dates: start: 20050101
  12. WELLBUTRIN XL [Concomitant]
     Indication: ANXIETY
     Dates: start: 20050101
  13. NEXIUM [Suspect]
     Route: 048
     Dates: start: 20010101, end: 20110501
  14. MAXALT [Concomitant]
     Indication: MIGRAINE
     Dates: start: 20050101
  15. LOVASTATIN [Concomitant]
     Indication: BLOOD CHOLESTEROL INCREASED
  16. VITAMIN D [Concomitant]
     Indication: OSTEOPOROSIS
  17. BENTYL [Concomitant]
     Indication: IRRITABLE BOWEL SYNDROME
     Dates: start: 20050101
  18. CRESTOR [Concomitant]
     Dosage: 10
     Dates: start: 20060127
  19. PEPCID [Concomitant]
     Indication: GASTROOESOPHAGEAL REFLUX DISEASE
     Dates: start: 20110501
  20. DAPSONE [Concomitant]
     Indication: VASCULITIS
  21. LOTREL [Concomitant]
     Indication: BLOOD PRESSURE INCREASED
     Dosage: 10/20 MG
     Dates: start: 20050101
  22. NEXIUM [Suspect]
     Indication: GASTROOESOPHAGEAL REFLUX DISEASE
     Route: 048
     Dates: start: 20030701
  23. ASATHIOPRINE [Concomitant]
     Indication: VASCULITIS
  24. ENABLEX [Concomitant]
     Dosage: 7.5 MG
     Dates: start: 20060127
  25. CALCIUM [Concomitant]
     Indication: OSTEOPOROSIS
  26. PERIOSTAT [Concomitant]
     Dates: start: 20050101
  27. NEXIUM [Suspect]
     Dosage: TOOK NEXIUM FOR SEVERAL YEARS
     Route: 048
  28. PROPRANOLOL [Concomitant]
     Indication: MIGRAINE
     Dates: start: 20050101
  29. CARBEMAZEPIN [Concomitant]
     Indication: TRIGEMINAL NEURALGIA
  30. LIPITOR [Concomitant]
     Indication: BLOOD CHOLESTEROL
     Dates: start: 20050101
  31. FLORINAL [Concomitant]
     Indication: HYPERTENSION
     Dates: start: 20060127
  32. RECLAST [Concomitant]
     Indication: OSTEOPOROSIS
  33. LEXAPRO [Concomitant]
     Indication: DEPRESSION
  34. DITROPAN XL [Concomitant]
     Indication: POLLAKIURIA
     Dates: start: 20050101

REACTIONS (12)
  - WRIST FRACTURE [None]
  - SPINAL COLUMN STENOSIS [None]
  - OSTEOPOROSIS [None]
  - OESOPHAGEAL SPASM [None]
  - DEPRESSION [None]
  - TIBIA FRACTURE [None]
  - UPPER LIMB FRACTURE [None]
  - SPINAL OSTEOARTHRITIS [None]
  - HYPOTHYROIDISM [None]
  - FOREARM FRACTURE [None]
  - FEMUR FRACTURE [None]
  - LOWER LIMB FRACTURE [None]
